FAERS Safety Report 20141070 (Version 1)
Quarter: 2021Q4

REPORT INFORMATION
  Report Type: Spontaneous
  Country: ES (occurrence: ES)
  Receive Date: 20211202
  Receipt Date: 20211202
  Transmission Date: 20220303
  Serious: Yes (Hospitalization, Other)
  Sender: FDA-Public Use
  Company Number: ES-BIOGEN-2021BI01055442

PATIENT
  Weight: 6 kg

DRUGS (1)
  1. SPINRAZA [Suspect]
     Active Substance: NUSINERSEN
     Indication: Spinal muscular atrophy
     Route: 065

REACTIONS (3)
  - Hydrocephalus [Unknown]
  - Respiratory failure [Unknown]
  - Kidney infection [Unknown]

NARRATIVE: CASE EVENT DATE: 20210101
